FAERS Safety Report 7562709-0 (Version None)
Quarter: 2011Q2

REPORT INFORMATION
  Report Type: 
  Country: None (occurrence: None)
  Receive Date: 20110622
  Receipt Date: 20110616
  Transmission Date: 20111010
  Serious: Yes (Other)
  Sender: FDA-Public Use
  Company Number: US-PFIZER INC-2010006393

PATIENT
  Sex: Female

DRUGS (3)
  1. CHANTIX [Suspect]
     Indication: SMOKING CESSATION THERAPY
     Dosage: 1 MG, UNK
     Dates: start: 20080101, end: 20080101
  2. HYDROCODONE [Concomitant]
     Indication: BACK PAIN
     Dosage: UNK,
     Dates: start: 20080101
  3. ADVAIR DISKUS 100/50 [Concomitant]
     Indication: LUNG DISORDER
     Dosage: UNK,
     Dates: start: 20080101

REACTIONS (6)
  - PHYSICAL ASSAULT [None]
  - INTENTIONAL SELF-INJURY [None]
  - ABNORMAL BEHAVIOUR [None]
  - AMNESIA [None]
  - INSOMNIA [None]
  - SUICIDE ATTEMPT [None]
